FAERS Safety Report 23213662 (Version 1)
Quarter: 2023Q4

REPORT INFORMATION
  Report Type: Spontaneous
  Country: FR (occurrence: FR)
  Receive Date: 20231121
  Receipt Date: 20231121
  Transmission Date: 20240109
  Serious: Yes (Hospitalization)
  Sender: FDA-Public Use
  Company Number: None

PATIENT
  Age: 70 Year
  Sex: Male
  Weight: 77 kg

DRUGS (2)
  1. GEMCITABINE HYDROCHLORIDE [Suspect]
     Active Substance: GEMCITABINE HYDROCHLORIDE
     Indication: Metastatic bronchial carcinoma
     Dosage: 2400 MG, CYCLICAL (C1J8)
     Route: 042
     Dates: start: 20231016
  2. LENOGRASTIM [Suspect]
     Active Substance: LENOGRASTIM
     Indication: Neutropenia
     Dosage: 34 INTERNATIONAL UNIT, DAILY (*MILLION INTERNATIONAL UNIT)
     Route: 058
     Dates: start: 20231017, end: 20231018

REACTIONS (2)
  - Penile ulceration [Recovering/Resolving]
  - Rash maculo-papular [Recovering/Resolving]

NARRATIVE: CASE EVENT DATE: 20231018
